FAERS Safety Report 9981241 (Version 1)
Quarter: 2014Q1

REPORT INFORMATION
  Report Type: Spontaneous
  Country: FR (occurrence: FR)
  Receive Date: 20140307
  Receipt Date: 20140307
  Transmission Date: 20141002
  Serious: Yes (Hospitalization, Other)
  Sender: FDA-Public Use
  Company Number: FR-009507513-1402FRA012423

PATIENT
  Age: 37 Year
  Sex: Female

DRUGS (3)
  1. VARNOLINE CONTINU [Suspect]
     Indication: CONTRACEPTION
     Dosage: 1 DF, QD
     Route: 048
     Dates: end: 20140129
  2. LYSANXIA [Concomitant]
     Dosage: 25 GTT, QD
     Route: 048
  3. DAFLON (DIOSMIN (+) HESPERIDIN) [Concomitant]
     Dosage: UNK
     Route: 048

REACTIONS (3)
  - Pain in extremity [Recovered/Resolved]
  - Pulmonary embolism [Recovered/Resolved]
  - Deep vein thrombosis [Recovered/Resolved]
